FAERS Safety Report 10465129 (Version 2)
Quarter: 2014Q3

REPORT INFORMATION
  Report Type: Spontaneous
  Country: DE (occurrence: DE)
  Receive Date: 20140919
  Receipt Date: 20140919
  Transmission Date: 20150326
  Serious: Yes (Other)
  Sender: FDA-Public Use
  Company Number: DE-JNJFOC-20140719803

PATIENT
  Sex: Male

DRUGS (7)
  1. HALDOL [Concomitant]
     Active Substance: HALOPERIDOL
     Route: 065
  2. FLUANXOL NOS [Concomitant]
     Route: 065
  3. RISPERDAL CONSTA [Suspect]
     Active Substance: RISPERIDONE
     Indication: PRODUCT USED FOR UNKNOWN INDICATION
     Route: 030
     Dates: start: 1989
  4. FLUANXOL NOS [Concomitant]
     Route: 065
  5. DAPOTUM D [Concomitant]
     Route: 065
  6. RISPERDAL CONSTA [Suspect]
     Active Substance: RISPERIDONE
     Indication: PRODUCT USED FOR UNKNOWN INDICATION
     Route: 030
  7. RISPERDAL CONSTA [Suspect]
     Active Substance: RISPERIDONE
     Indication: PRODUCT USED FOR UNKNOWN INDICATION
     Route: 030

REACTIONS (7)
  - Fall [Unknown]
  - Tooth fracture [Unknown]
  - Facial pain [Unknown]
  - Gangrene [Unknown]
  - Arthralgia [Unknown]
  - Adverse event [Unknown]
  - Loss of consciousness [Unknown]

NARRATIVE: CASE EVENT DATE: 2005
